FAERS Safety Report 4517278-6 (Version None)
Quarter: 2004Q4

REPORT INFORMATION
  Report Type: 
  Country: None (occurrence: None)
  Receive Date: 20041008
  Receipt Date: 20040729
  Transmission Date: 20050328
  Serious: No
  Sender: FDA-Public Use
  Company Number: 2004S1000161

PATIENT
  Age: 36 Year
  Sex: Male
  Weight: 137.7 kg

DRUGS (3)
  1. CUBICIN [Suspect]
     Indication: STAPHYLOCOCCAL INFECTION
     Dosage: 800 MG; Q24H; IV
     Route: 042
     Dates: start: 20040727
  2. METFORMIN HCL [Concomitant]
  3. PIOGLITAZONE HCL [Concomitant]

REACTIONS (1)
  - DIARRHOEA [None]
